FAERS Safety Report 23396508 (Version 1)
Quarter: 2024Q1

REPORT INFORMATION
  Report Type: Spontaneous
  Country: US (occurrence: US)
  Receive Date: 20240112
  Receipt Date: 20240112
  Transmission Date: 20240409
  Serious: Yes (Other)
  Sender: FDA-Public Use
  Company Number: US-Merck Healthcare KGaA-2024000971

PATIENT
  Age: 62 Year
  Sex: Female

DRUGS (1)
  1. MAVENCLAD [Suspect]
     Active Substance: CLADRIBINE
     Indication: Multiple sclerosis
     Dosage: MONTH ONE THERAPY
     Route: 048
     Dates: start: 20231223, end: 20231228

REACTIONS (3)
  - Muscle spasms [Unknown]
  - Lower respiratory tract infection [Unknown]
  - Nodule [Unknown]

NARRATIVE: CASE EVENT DATE: 20240104
